FAERS Safety Report 11364819 (Version 2)
Quarter: 2015Q4

REPORT INFORMATION
  Report Type: Spontaneous
  Country: US (occurrence: US)
  Receive Date: 20150811
  Receipt Date: 20151028
  Transmission Date: 20160304
  Serious: Yes (Hospitalization, Other)
  Sender: FDA-Public Use
  Company Number: US-ELI_LILLY_AND_COMPANY-US201508000279

PATIENT
  Age: 56 Year
  Sex: Male
  Weight: 165.1 kg

DRUGS (3)
  1. AXIRON [Suspect]
     Active Substance: TESTOSTERONE
     Indication: BLOOD TESTOSTERONE DECREASED
     Dosage: 30 MG, QD
     Route: 062
     Dates: start: 20130731, end: 20131031
  2. TESTIM [Suspect]
     Active Substance: TESTOSTERONE
     Indication: BLOOD TESTOSTERONE DECREASED
     Dosage: UNK UNK, QD
     Route: 065
     Dates: start: 20070114, end: 20081208
  3. ANDROGEL [Suspect]
     Active Substance: TESTOSTERONE
     Indication: BLOOD TESTOSTERONE DECREASED
     Dosage: UNK UNK, QD
     Route: 065
     Dates: start: 20090721, end: 20111102

REACTIONS (3)
  - Angina unstable [Not Recovered/Not Resolved]
  - Atrial fibrillation [Not Recovered/Not Resolved]
  - Deep vein thrombosis [Not Recovered/Not Resolved]

NARRATIVE: CASE EVENT DATE: 20130903
